FAERS Safety Report 7429839-5 (Version None)
Quarter: 2011Q2

REPORT INFORMATION
  Report Type: 
  Country: None (occurrence: None)
  Receive Date: 20110414
  Receipt Date: 20110331
  Transmission Date: 20111010
  Serious: Yes (Hospitalization, Other)
  Sender: FDA-Public Use
  Company Number: UTC-003010

PATIENT
  Age: 59 Year
  Sex: Female
  Weight: 126.8 kg

DRUGS (5)
  1. FLUOXETINE [Concomitant]
  2. DIURETICS (DIURETICS) [Concomitant]
  3. TYVASO (AEROSOL FOR INHALATION) [Concomitant]
  4. ADCIRCA [Concomitant]
  5. REMODULIN [Suspect]
     Indication: PULMONARY ARTERIAL HYPERTENSION
     Dosage: 24.48 UG/KG (0.017 UG/KG,1 IN 1 MIN),INTRAVENOUS
     Route: 042
     Dates: start: 20101105, end: 20110201

REACTIONS (6)
  - NAUSEA [None]
  - PANCYTOPENIA [None]
  - HEADACHE [None]
  - CELLULITIS [None]
  - OEDEMA PERIPHERAL [None]
  - CONDITION AGGRAVATED [None]
